FAERS Safety Report 5719612-8 (Version None)
Quarter: 2008Q2

REPORT INFORMATION
  Report Type: 
  Country: None (occurrence: None)
  Receive Date: 20080428
  Receipt Date: 20080422
  Transmission Date: 20081010
  Serious: Yes (Life-Threatening)
  Sender: FDA-Public Use
  Company Number: B0517646A

PATIENT
  Age: 25 Year
  Sex: Female

DRUGS (3)
  1. CLAMOXYL [Suspect]
     Indication: PHARYNGITIS
     Route: 048
     Dates: start: 20080126, end: 20080131
  2. ROCEPHIN [Suspect]
     Indication: PHARYNGITIS
     Route: 042
     Dates: start: 20080201, end: 20080201
  3. PARACETAMOL [Concomitant]
     Indication: DRUG USE FOR UNKNOWN INDICATION
     Route: 048
     Dates: start: 20080126, end: 20080130

REACTIONS (13)
  - ABDOMINAL PAIN UPPER [None]
  - DRUG HYPERSENSITIVITY [None]
  - DRUG RASH WITH EOSINOPHILIA AND SYSTEMIC SYMPTOMS [None]
  - HEADACHE [None]
  - HEPATIC FAILURE [None]
  - HEPATITIS FULMINANT [None]
  - INFECTION [None]
  - LEUKOPENIA [None]
  - MYALGIA [None]
  - PYREXIA [None]
  - RASH MACULAR [None]
  - THROMBOCYTOPENIA [None]
  - TYPE IV HYPERSENSITIVITY REACTION [None]
